FAERS Safety Report 16743963 (Version 3)
Quarter: 2019Q3

REPORT INFORMATION
  Report Type: Spontaneous
  Country: CH (occurrence: CH)
  Receive Date: 20190827
  Receipt Date: 20190918
  Transmission Date: 20191005
  Serious: Yes (Other)
  Sender: FDA-Public Use
  Company Number: CH-TEVA-2019-CH-1099841

PATIENT
  Sex: Female
  Weight: 67 kg

DRUGS (6)
  1. GEMZAR [Suspect]
     Active Substance: GEMCITABINE HYDROCHLORIDE
     Dosage: 1740MG ON DAY 1,8,15 EVERY 4 WEEKS IN COMBINATION WITH ABRAXANE
     Dates: start: 20190325, end: 20190729
  2. ABRAXANE [Suspect]
     Active Substance: PACLITAXEL
     Dates: start: 20190325, end: 20190729
  3. IRINOTECAN [Suspect]
     Active Substance: IRINOTECAN
     Indication: PANCREATIC CARCINOMA
     Dosage: 265MG/265MG/260MG
     Route: 065
     Dates: start: 20190128
  4. OXALIPLATIN. [Suspect]
     Active Substance: OXALIPLATIN
     Indication: PANCREATIC CARCINOMA
     Dosage: 150MG/150MG/150MG
     Route: 065
     Dates: start: 20190128
  5. FLUOROURACIL. [Suspect]
     Active Substance: FLUOROURACIL
     Indication: PANCREATIC CARCINOMA
     Dosage: 4270MG/4270MG/4150MG
     Route: 065
     Dates: start: 20190128
  6. FOLINIC ACID [Suspect]
     Active Substance: LEUCOVORIN
     Indication: PANCREATIC CARCINOMA
     Dosage: 710MG/710MG/690MG
     Route: 065
     Dates: start: 20190128

REACTIONS (2)
  - Malignant neoplasm progression [Not Recovered/Not Resolved]
  - Weight decreased [Unknown]
